FAERS Safety Report 8558698-2 (Version None)
Quarter: 2012Q3

REPORT INFORMATION
  Report Type: 
  Country: None (occurrence: None)
  Receive Date: 20120801
  Receipt Date: 20120725
  Transmission Date: 20120928
  Serious: Yes (Other)
  Sender: FDA-Public Use
  Company Number: US-JNJFOC-20120705326

PATIENT
  Sex: Female

DRUGS (1)
  1. DOXORUBICIN HYDROCHLORIDE [Suspect]
     Indication: OVARIAN CANCER
     Dosage: EVERY 4 WEEKS
     Route: 042
     Dates: start: 20120101

REACTIONS (3)
  - NEUROPATHY PERIPHERAL [None]
  - SENSATION OF HEAVINESS [None]
  - MUCOSAL INFLAMMATION [None]
